FAERS Safety Report 12748091 (Version 1)
Quarter: 2016Q3

REPORT INFORMATION
  Report Type: Spontaneous
  Country: US (occurrence: US)
  Receive Date: 20160915
  Receipt Date: 20160915
  Transmission Date: 20161109
  Serious: Yes (Other)
  Sender: FDA-Public Use
  Company Number: US-ASTELLAS-2016US005736

PATIENT
  Age: 79 Year
  Sex: Male

DRUGS (2)
  1. XTANDI [Suspect]
     Active Substance: ENZALUTAMIDE
     Indication: PROSTATE CANCER
     Route: 065
  2. XTANDI [Suspect]
     Active Substance: ENZALUTAMIDE
     Route: 048

REACTIONS (14)
  - Dysgeusia [Unknown]
  - Weight decreased [Recovering/Resolving]
  - Hypoacusis [Unknown]
  - Dyskinesia [Not Recovered/Not Resolved]
  - Prostatic specific antigen increased [Unknown]
  - Vision blurred [Not Recovered/Not Resolved]
  - Hypogeusia [Not Recovered/Not Resolved]
  - Malignant neoplasm progression [Unknown]
  - Hypoacusis [Not Recovered/Not Resolved]
  - Constipation [Unknown]
  - Decreased appetite [Unknown]
  - Dyspnoea [Not Recovered/Not Resolved]
  - Fatigue [Not Recovered/Not Resolved]
  - Anxiety [Unknown]

NARRATIVE: CASE EVENT DATE: 201605
